FAERS Safety Report 14991975 (Version 1)
Quarter: 2018Q2

REPORT INFORMATION
  Report Type: Spontaneous
  Country: US (occurrence: US)
  Receive Date: 20180608
  Receipt Date: 20180608
  Transmission Date: 20180711
  Serious: Yes (Death)
  Sender: FDA-Public Use
  Company Number: US-IMPAX LABORATORIES, INC-2018-IPXL-01939

PATIENT
  Age: 54 Year
  Sex: Male

DRUGS (4)
  1. METHYLPREDNISOLONE. [Suspect]
     Active Substance: METHYLPREDNISOLONE
     Indication: UPPER RESPIRATORY TRACT INFECTION
     Dosage: 1 G FOR 5 DAYS
     Route: 065
  2. IMMUNOGLOBULIN IV [Suspect]
     Active Substance: HUMAN IMMUNOGLOBULIN G
     Indication: UPPER RESPIRATORY TRACT INFECTION
     Dosage: 20 MG/KG, DIVIDED OVER 5 DAYS
     Route: 042
  3. PREDNISONE. [Suspect]
     Active Substance: PREDNISONE
     Indication: UPPER RESPIRATORY TRACT INFECTION
     Dosage: UNK
     Route: 065
  4. DOXYCYCLINE HYCLATE DELAYED RELEASE [Suspect]
     Active Substance: DOXYCYCLINE HYCLATE
     Indication: UPPER RESPIRATORY TRACT INFECTION
     Dosage: UNK
     Route: 065

REACTIONS (1)
  - Encephalitis [Fatal]
